FAERS Safety Report 6304299-6 (Version None)
Quarter: 2009Q3

REPORT INFORMATION
  Report Type: 
  Country: None (occurrence: None)
  Receive Date: 20090811
  Receipt Date: 20090731
  Transmission Date: 20100115
  Serious: Yes (Hospitalization)
  Sender: FDA-Public Use
  Company Number: AT-PFIZER INC-2009249238

PATIENT
  Age: 45 Year

DRUGS (1)
  1. SOMATROPIN [Suspect]
     Indication: HYPOPITUITARISM
     Dosage: UNK
     Route: 058
     Dates: start: 20040609, end: 20090605

REACTIONS (3)
  - CONDITION AGGRAVATED [None]
  - CRANIOPHARYNGIOMA [None]
  - VISUAL IMPAIRMENT [None]
